FAERS Safety Report 6463221-2 (Version None)
Quarter: 2009Q4

REPORT INFORMATION
  Report Type: 
  Country: None (occurrence: None)
  Receive Date: 20091130
  Receipt Date: 20090502
  Transmission Date: 20100525
  Serious: Yes (Hospitalization, Other)
  Sender: FDA-Public Use
  Company Number: US-AMGEN-TCS345509

PATIENT
  Sex: Female

DRUGS (2)
  1. ENBREL [Suspect]
     Indication: ANKYLOSING SPONDYLITIS
     Route: 058
     Dates: start: 20050320
  2. HUMIRA [Concomitant]

REACTIONS (4)
  - ANKYLOSING SPONDYLITIS [None]
  - BACTERIAL INFECTION [None]
  - GANGRENE [None]
  - INJECTION SITE INDURATION [None]
